FAERS Safety Report 9359340 (Version 3)
Quarter: 2013Q3

REPORT INFORMATION
  Report Type: Spontaneous
  Country: US (occurrence: US)
  Receive Date: 20130620
  Receipt Date: 20130807
  Transmission Date: 20140515
  Serious: No
  Sender: FDA-Public Use
  Company Number: US-PFIZER INC-2013183627

PATIENT
  Age: 59 Year
  Sex: Female
  Weight: 94.33 kg

DRUGS (3)
  1. CHANTIX [Suspect]
     Dosage: UNK
  2. NEURONTIN [Suspect]
     Dosage: UNK
  3. VICODIN [Suspect]
     Dosage: UNK

REACTIONS (4)
  - Drug hypersensitivity [Unknown]
  - Vomiting [Unknown]
  - Disorientation [Recovered/Resolved]
  - Drug intolerance [Unknown]
